FAERS Safety Report 9000258 (Version 1)
Quarter: 2013Q1

REPORT INFORMATION
  Report Type: Spontaneous
  Country: US (occurrence: None)
  Receive Date: 20130102
  Receipt Date: 20130102
  Transmission Date: 20140127
  Serious: No
  Sender: FDA-Public Use
  Company Number: None

PATIENT
  Age: 26 Year
  Sex: Female
  Weight: 115 kg

DRUGS (1)
  1. VALPROIC ACID [Suspect]
     Dosage: 1000 MG BID PO
     Route: 048
     Dates: start: 20120717, end: 20120809

REACTIONS (2)
  - Thrombocytopenia [None]
  - Urosepsis [None]
